FAERS Safety Report 5521474-9 (Version None)
Quarter: 2007Q4

REPORT INFORMATION
  Report Type: 
  Country: None (occurrence: None)
  Receive Date: 20071119
  Receipt Date: 20071107
  Transmission Date: 20080405
  Serious: Yes (Other)
  Sender: FDA-Public Use
  Company Number: US-PFIZER INC-2007094381

PATIENT
  Sex: Female
  Weight: 70.454 kg

DRUGS (2)
  1. DILANTIN [Suspect]
     Indication: GRAND MAL CONVULSION
  2. PHENOBARBITAL TAB [Concomitant]
     Indication: GRAND MAL CONVULSION

REACTIONS (16)
  - ACCOMMODATION DISORDER [None]
  - ANOREXIA [None]
  - ANTICONVULSANT DRUG LEVEL INCREASED [None]
  - BALANCE DISORDER [None]
  - DIZZINESS [None]
  - DYSGEUSIA [None]
  - FATIGUE [None]
  - IMPAIRED DRIVING ABILITY [None]
  - IMPAIRED WORK ABILITY [None]
  - MALAISE [None]
  - MIGRAINE [None]
  - NAUSEA [None]
  - PAIN [None]
  - PARAESTHESIA [None]
  - VISION BLURRED [None]
  - WEIGHT DECREASED [None]
